FAERS Safety Report 6465769-3 (Version None)
Quarter: 2009Q4

REPORT INFORMATION
  Report Type: 
  Country: None (occurrence: None)
  Receive Date: 20091124
  Receipt Date: 20091109
  Transmission Date: 20100525
  Serious: Yes (Hospitalization)
  Sender: FDA-Public Use
  Company Number: 8054532

PATIENT
  Sex: Female
  Weight: 52 kg

DRUGS (2)
  1. KEPPRA [Suspect]
     Indication: CONVULSION
     Dosage: 1000 MG 2/D PO
     Route: 048
     Dates: start: 20090901
  2. SUCRALFATE [Concomitant]

REACTIONS (2)
  - 5-HYDROXYINDOLACETIC ACID INCREASED [None]
  - LABORATORY TEST ABNORMAL [None]
